FAERS Safety Report 7553779-4 (Version None)
Quarter: 2011Q2

REPORT INFORMATION
  Report Type: 
  Country: None (occurrence: None)
  Receive Date: 20110617
  Receipt Date: 20110608
  Transmission Date: 20111010
  Serious: Yes (Other)
  Sender: FDA-Public Use
  Company Number: FR-AMGEN-FRASP2011003952

PATIENT
  Age: 50 Year
  Sex: Female
  Weight: 87 kg

DRUGS (3)
  1. PANTOPRAZOLE SODIUM [Concomitant]
     Indication: ABDOMINAL PAIN UPPER
     Dosage: 40 MG, 1X/DAY
     Route: 048
     Dates: start: 20101101
  2. INDOCIN [Concomitant]
     Indication: BONE PAIN
     Dosage: 75 MG, 3X/DAY
     Route: 048
     Dates: start: 20101101
  3. ENBREL [Suspect]
     Indication: PRODUCT USED FOR UNKNOWN INDICATION
     Dosage: 50 MG, WEEKLY
     Route: 058
     Dates: start: 20101220, end: 20110118

REACTIONS (11)
  - HEADACHE [None]
  - EYELID OEDEMA [None]
  - GINGIVAL BLEEDING [None]
  - URTICARIA [None]
  - FEELING COLD [None]
  - VOMITING [None]
  - PHARYNGEAL OEDEMA [None]
  - EPISTAXIS [None]
  - FATIGUE [None]
  - WHEEZING [None]
  - DIARRHOEA [None]
